FAERS Safety Report 14274088 (Version 1)
Quarter: 2017Q4

REPORT INFORMATION
  Report Type: Spontaneous
  Country: FR (occurrence: FR)
  Receive Date: 20171211
  Receipt Date: 20171211
  Transmission Date: 20180321
  Serious: Yes (Death, Hospitalization, Other)
  Sender: FDA-Public Use
  Company Number: FR-OTSUKA-DJ20060165

PATIENT
  Age: 53 Year
  Sex: Female
  Weight: 95 kg

DRUGS (9)
  1. SERESTA [Concomitant]
     Active Substance: OXAZEPAM
     Indication: ANXIETY
     Dosage: UNK
     Route: 065
     Dates: start: 20051016, end: 20051213
  2. TERCIAN [Concomitant]
     Active Substance: CYAMEMAZINE
     Indication: AGITATION
  3. MEPRONIZINE [Concomitant]
     Active Substance: ACEPROMETAZINE MALEATE\MEPROBAMATE
     Indication: SLEEP DISORDER
     Dosage: UNK
     Route: 065
     Dates: end: 20051213
  4. ABILIFY [Suspect]
     Active Substance: ARIPIPRAZOLE
     Indication: PSYCHOTIC DISORDER
     Dosage: 15 MG, UNK
     Route: 048
     Dates: start: 20051202, end: 20051212
  5. MIRTAZAPINE. [Concomitant]
     Active Substance: MIRTAZAPINE
     Indication: DEPRESSION
     Dosage: 30 MG, QD
     Route: 065
     Dates: start: 20051201, end: 20051213
  6. MIRTAZAPINE. [Concomitant]
     Active Substance: MIRTAZAPINE
     Indication: MAJOR DEPRESSION
  7. TERCIAN [Concomitant]
     Active Substance: CYAMEMAZINE
     Indication: ANXIETY
     Dosage: UNK
     Route: 065
     Dates: start: 20051016, end: 20051213
  8. NORSET [Concomitant]
     Active Substance: MIRTAZAPINE
     Indication: PRODUCT USED FOR UNKNOWN INDICATION
     Dosage: UNK
     Route: 065
     Dates: start: 20051201, end: 20051213
  9. LEVOTHYROX [Concomitant]
     Active Substance: LEVOTHYROXINE
     Indication: HYPOTHYROIDISM
     Dosage: UNK
     Route: 065
     Dates: end: 20051213

REACTIONS (9)
  - Coma [Not Recovered/Not Resolved]
  - Tachypnoea [Not Recovered/Not Resolved]
  - Pulmonary embolism [Fatal]
  - Gait disturbance [Not Recovered/Not Resolved]
  - Mutism [Not Recovered/Not Resolved]
  - Confusional state [Not Recovered/Not Resolved]
  - Dehydration [Not Recovered/Not Resolved]
  - Cardiac failure [Fatal]
  - Pyrexia [Not Recovered/Not Resolved]

NARRATIVE: CASE EVENT DATE: 200512
